FAERS Safety Report 10365799 (Version 1)
Quarter: 2014Q3

REPORT INFORMATION
  Report Type: Spontaneous
  Country: US (occurrence: US)
  Receive Date: 20140806
  Receipt Date: 20140806
  Transmission Date: 20150326
  Serious: No
  Sender: FDA-Public Use
  Company Number: US-LUNDBECK-DKLU1101640

PATIENT
  Age: 18 Year
  Sex: Male

DRUGS (2)
  1. ONFI [Suspect]
     Active Substance: CLOBAZAM
     Indication: PRODUCT USED FOR UNKNOWN INDICATION
  2. ONFI [Suspect]
     Active Substance: CLOBAZAM

REACTIONS (2)
  - Incorrect drug administration duration [Recovered/Resolved]
  - Somnolence [Not Recovered/Not Resolved]

NARRATIVE: CASE EVENT DATE: 20140706
